FAERS Safety Report 11880361 (Version 2)
Quarter: 2016Q1

REPORT INFORMATION
  Report Type: Spontaneous
  Country: SK (occurrence: SK)
  Receive Date: 20151230
  Receipt Date: 20160202
  Transmission Date: 20160526
  Serious: Yes (Death, Other)
  Sender: FDA-Public Use
  Company Number: SK-ARIAD-2015SK005921

PATIENT
  Age: 56 Year
  Sex: Male

DRUGS (1)
  1. ICLUSIG [Suspect]
     Active Substance: PONATINIB
     Indication: CHRONIC MYELOID LEUKAEMIA
     Dosage: 45 MG, QD
     Route: 048
     Dates: start: 20151029, end: 20151128

REACTIONS (10)
  - Neoplasm progression [Fatal]
  - Sepsis [Unknown]
  - Lymphadenopathy [Unknown]
  - Anaemia [Unknown]
  - Metabolic disorder [Fatal]
  - Pyrexia [Unknown]
  - Thrombocytopenia [Unknown]
  - Hepatosplenomegaly [Unknown]
  - Leukocytosis [Unknown]
  - Aspergillus infection [Fatal]

NARRATIVE: CASE EVENT DATE: 201511
